FAERS Safety Report 8263121 (Version 5)
Quarter: 2013Q1

REPORT INFORMATION
  Report Type: Spontaneous
  Country: CA (occurrence: CA)
  Receive Date: 20111125
  Receipt Date: 20130131
  Transmission Date: 20140127
  Serious: Yes (Hospitalization, Other)
  Sender: FDA-Public Use
  Company Number: PHHY2011CA00734

PATIENT
  Sex: Female
  Weight: 49.89 kg

DRUGS (5)
  1. ACLASTA [Suspect]
     Indication: OSTEOPOROSIS
     Dosage: 5 MG
     Route: 042
     Dates: start: 20090918
  2. ACLASTA [Suspect]
     Dosage: 5 MG
     Route: 042
     Dates: start: 20110131
  3. ACLASTA [Suspect]
     Dosage: UNK
     Route: 042
     Dates: start: 20120131
  4. CALCIUM [Concomitant]
     Dosage: 25 ML, BID
  5. ENSURE [Concomitant]
     Dosage: 3 OR 4 PER DAY

REACTIONS (11)
  - Abdominal hernia [Unknown]
  - Thrombosis [Unknown]
  - Sleep apnoea syndrome [Unknown]
  - Insomnia [Recovered/Resolved]
  - Weight fluctuation [Unknown]
  - Restless legs syndrome [Unknown]
  - Discomfort [Unknown]
  - Pain [Unknown]
  - Bone pain [Recovered/Resolved]
  - Arthralgia [Recovered/Resolved]
  - Pain in extremity [Unknown]
